FAERS Safety Report 12811195 (Version 2)
Quarter: 2016Q4

REPORT INFORMATION
  Report Type: Spontaneous
  Country: US (occurrence: US)
  Receive Date: 20161005
  Receipt Date: 20161007
  Transmission Date: 20170207
  Serious: Yes (Hospitalization)
  Sender: FDA-Public Use
  Company Number: US-HORIZON-RAV-0199-2016

PATIENT
  Age: 4 Year
  Sex: Female

DRUGS (4)
  1. RANITIDINE. [Concomitant]
     Active Substance: RANITIDINE
  2. RAVICTI [Suspect]
     Active Substance: GLYCEROL PHENYLBUTYRATE
     Indication: UREA CYCLE ENZYME DEFICIENCY
     Dosage: 2 ML TID INCREASED TO 2.5 ML TID
     Dates: start: 20160810
  3. LEVETIRACETAM. [Concomitant]
     Active Substance: LEVETIRACETAM
     Indication: SEIZURE
  4. L-CITRULLINE [Concomitant]
     Active Substance: CITRULLINE
     Indication: SUPPLEMENTATION THERAPY

REACTIONS (3)
  - Treatment noncompliance [Recovered/Resolved]
  - Decreased appetite [Recovered/Resolved]
  - Hyperammonaemia [Recovered/Resolved]
